FAERS Safety Report 16191667 (Version 1)
Quarter: 2019Q2

REPORT INFORMATION
  Report Type: Spontaneous
  Country: GB (occurrence: GB)
  Receive Date: 20190412
  Receipt Date: 20190412
  Transmission Date: 20190711
  Serious: Yes (Other)
  Sender: FDA-Public Use
  Company Number: GB-SA-2019SA095876

PATIENT
  Age: 26 Year
  Sex: Female

DRUGS (4)
  1. NOVORAPID [Concomitant]
     Active Substance: INSULIN ASPART
  2. URSODEOXYCHOLIC ACID [Concomitant]
     Active Substance: URSODIOL
     Dosage: UNK UNK, UNK
  3. METFORMIN [Concomitant]
     Active Substance: METFORMIN HYDROCHLORIDE
     Dosage: UNK UNK, UNK
  4. TOUJEO [Suspect]
     Active Substance: INSULIN GLARGINE
     Indication: GESTATIONAL DIABETES
     Dosage: 80 U, UNK

REACTIONS (3)
  - Exposure during pregnancy [Unknown]
  - Caesarean section [Unknown]
  - Blood glucose decreased [Unknown]
